FAERS Safety Report 5984380-1 (Version None)
Quarter: 2008Q4

REPORT INFORMATION
  Report Type: 
  Country: None (occurrence: None)
  Receive Date: 20081208
  Receipt Date: 20081203
  Transmission Date: 20090506
  Serious: Yes (Other)
  Sender: FDA-Public Use
  Company Number: PHEH2008US08549

PATIENT
  Sex: Female

DRUGS (1)
  1. ZOMETA [Suspect]
     Dosage: 4 MG EVERY 6 MONTHS
     Dates: start: 20080918

REACTIONS (8)
  - DYSPEPSIA [None]
  - EYE IRRITATION [None]
  - EYELID OEDEMA [None]
  - EYELID PTOSIS [None]
  - NECK PAIN [None]
  - OCULAR HYPERAEMIA [None]
  - PAIN [None]
  - PYREXIA [None]
